FAERS Safety Report 8848404 (Version 6)
Quarter: 2013Q2

REPORT INFORMATION
  Report Type: Spontaneous
  Country: BR (occurrence: BR)
  Receive Date: 20121019
  Receipt Date: 20130617
  Transmission Date: 20140414
  Serious: Yes (Other)
  Sender: FDA-Public Use
  Company Number: BR-BIOGENIDEC-2012BI008354

PATIENT
  Age: 22 Year
  Sex: Female
  Weight: 86 kg

DRUGS (4)
  1. AVONEX [Suspect]
     Indication: MULTIPLE SCLEROSIS
     Route: 030
     Dates: start: 201012, end: 20121107
  2. AVONEX [Suspect]
     Indication: MULTIPLE SCLEROSIS
     Route: 030
     Dates: start: 20121114
  3. UNKNOWN MEDICATION [Concomitant]
     Indication: HYPERTENSION
     Route: 048
     Dates: start: 201208
  4. METILVITA [Concomitant]
     Indication: HYPERTENSION
     Route: 048
     Dates: start: 201208, end: 201211

REACTIONS (1)
  - Caesarean section [Recovered/Resolved]
